FAERS Safety Report 11635714 (Version 1)
Quarter: 2015Q4

REPORT INFORMATION
  Report Type: Spontaneous
  Country: US (occurrence: US)
  Receive Date: 20151016
  Receipt Date: 20151016
  Transmission Date: 20160304
  Serious: Yes (Hospitalization)
  Sender: FDA-Public Use
  Company Number: US-PFIZER INC-2015343282

PATIENT
  Age: 52 Year
  Sex: Male
  Weight: 66 kg

DRUGS (1)
  1. CHANTIX [Suspect]
     Active Substance: VARENICLINE TARTRATE
     Indication: SMOKING CESSATION THERAPY
     Dosage: UNK
     Dates: start: 20100629

REACTIONS (9)
  - Suicide attempt [Unknown]
  - Hypersomnia [Recovered/Resolved]
  - Amnesia [Recovering/Resolving]
  - Depression [Unknown]
  - Feeling abnormal [Unknown]
  - Myocardial infarction [Unknown]
  - Abulia [Unknown]
  - Overdose [Unknown]
  - Weight decreased [Recovering/Resolving]

NARRATIVE: CASE EVENT DATE: 201012
